FAERS Safety Report 9311781 (Version 1)
Quarter: 2013Q2

REPORT INFORMATION
  Report Type: Report from Study
  Country: US (occurrence: US)
  Receive Date: 20130524
  Receipt Date: 20130524
  Transmission Date: 20140414
  Serious: Yes (Disabling, Other)
  Sender: FDA-Public Use
  Company Number: US-RB-023013-11

PATIENT
  Age: 62 Year
  Sex: Male

DRUGS (3)
  1. SUBOXONE TABLET [Suspect]
     Indication: DRUG DEPENDENCE
     Dosage: ONE AND A HALF TABLET A DAY
     Route: 060
     Dates: start: 2009, end: 201103
  2. HEROIN [Suspect]
     Indication: PRODUCT USED FOR UNKNOWN INDICATION
     Dosage: DOSING DETAILS UNKNOWN, USED ONCE OR TWICE A MONTH
     Route: 065
  3. UNSPECIFIED BLOOD PRESSURE MEDICATION [Concomitant]
     Indication: HYPERTENSION
     Dosage: DOSING DETAILS UNKNOWN
     Route: 065
     Dates: start: 2009

REACTIONS (6)
  - Wrong technique in drug usage process [Recovered/Resolved]
  - Drug abuse [Unknown]
  - Drug withdrawal syndrome [Unknown]
  - Myocardial infarction [Recovering/Resolving]
  - Cerebrovascular accident [Recovering/Resolving]
  - Disability [Not Recovered/Not Resolved]
